FAERS Safety Report 10087972 (Version 1)
Quarter: 2014Q2

REPORT INFORMATION
  Report Type: Spontaneous
  Country: CN (occurrence: CN)
  Receive Date: 20140419
  Receipt Date: 20140419
  Transmission Date: 20141212
  Serious: Yes (Hospitalization)
  Sender: FDA-Public Use
  Company Number: CN-009507513-1404CHN010173

PATIENT
  Age: 70 Year
  Sex: Female
  Weight: 40 kg

DRUGS (3)
  1. SINEMET [Suspect]
     Indication: PARKINSON^S DISEASE
     Dosage: STRENGTH-0.5,UNITS-TABLET, TID
     Route: 048
     Dates: start: 20110701, end: 20130608
  2. MADOPAR [Concomitant]
     Indication: PARKINSON^S DISEASE
     Dosage: UNK
     Dates: start: 2007, end: 2011
  3. MADOPAR [Concomitant]
     Dosage: 0.125G, Q4H (6-7 TIMES DAILY)
     Route: 048
     Dates: start: 20110701, end: 20130608

REACTIONS (2)
  - Persecutory delusion [Recovering/Resolving]
  - Mental disorder [Recovering/Resolving]
